FAERS Safety Report 6602214-9 (Version None)
Quarter: 2010Q1

REPORT INFORMATION
  Report Type: 
  Country: None (occurrence: None)
  Receive Date: 20100225
  Receipt Date: 20100223
  Transmission Date: 20100710
  Serious: Yes (Hospitalization)
  Sender: FDA-Public Use
  Company Number: DE-WYE-G05624510

PATIENT
  Sex: Female
  Weight: 56 kg

DRUGS (16)
  1. TORISEL [Suspect]
     Indication: METASTATIC RENAL CELL CARCINOMA
     Route: 042
     Dates: start: 20080429, end: 20080716
  2. TORISEL [Suspect]
     Route: 042
     Dates: start: 20080730, end: 20081104
  3. TORISEL [Suspect]
     Route: 042
     Dates: start: 20081211, end: 20090113
  4. TORISEL [Suspect]
     Route: 042
     Dates: start: 20090218, end: 20090407
  5. TORISEL [Suspect]
     Route: 042
     Dates: start: 20090101, end: 20090801
  6. TORISEL [Suspect]
     Route: 042
     Dates: start: 20090812
  7. ENALAPRIL MALEATE [Concomitant]
     Dosage: 10 MG, FREQUENCY UNKNOWN
  8. METOPROLOL SUCCINATE [Concomitant]
     Dosage: 95 MG, FREQUENCY UNKNOWN
  9. ALLOPURINOL [Concomitant]
     Dosage: 300 MG, FREQUENCY UNKNOWN
  10. AERIUS [Concomitant]
     Indication: PREMEDICATION
     Dosage: 5 MG PRIOR TO TORISEL INFUSION
     Route: 042
     Dates: start: 20090401
  11. SPIRONOLACTONE [Concomitant]
  12. FUROSEMIDE [Concomitant]
     Dosage: 40 MG, FREQUENCY UNKNOWN
  13. ACTRAPHANE HM [Concomitant]
  14. ZYRTEC [Concomitant]
     Indication: PREMEDICATION
     Dosage: 10 MG PRIOR TO TORISEL INFUSION
     Route: 042
     Dates: end: 20090301
  15. TRAMADOL HCL [Concomitant]
  16. SORTIS [Concomitant]
     Dosage: 10 MG, FREQUENCY UNKNOWN

REACTIONS (1)
  - HYPERKALAEMIA [None]
